FAERS Safety Report 13126561 (Version 1)
Quarter: 2017Q1

REPORT INFORMATION
  Report Type: Spontaneous
  Country: US (occurrence: US)
  Receive Date: 20170118
  Receipt Date: 20170118
  Transmission Date: 20170428
  Serious: No
  Sender: FDA-Public Use
  Company Number: US-ROCHE-1698472

PATIENT
  Sex: Female

DRUGS (1)
  1. RITUXAN [Suspect]
     Active Substance: RITUXIMAB
     Indication: GRANULOMATOSIS WITH POLYANGIITIS
     Dosage: ONE ROUND, FOUR INFUSIONS, ONE WEEK APART
     Route: 042
     Dates: start: 2013

REACTIONS (3)
  - Off label use [Unknown]
  - Antineutrophil cytoplasmic antibody positive [Unknown]
  - Granulomatosis with polyangiitis [Unknown]
